FAERS Safety Report 10781605 (Version 1)
Quarter: 2015Q1

REPORT INFORMATION
  Report Type: Spontaneous
  Country: US (occurrence: US)
  Receive Date: 20150210
  Receipt Date: 20150210
  Transmission Date: 20150721
  Serious: No
  Sender: FDA-Public Use
  Company Number: US-MYLANLABS-2014M1011092

PATIENT
  Age: 15 Year
  Sex: Male
  Weight: 39.91 kg

DRUGS (1)
  1. MODAFINIL TABLETS, USP [Suspect]
     Active Substance: MODAFINIL
     Indication: NARCOLEPSY
     Dosage: 100 MG, AM
     Route: 048
     Dates: start: 20141106

REACTIONS (1)
  - Psychomotor hyperactivity [Not Recovered/Not Resolved]

NARRATIVE: CASE EVENT DATE: 201411
